FAERS Safety Report 6294593-X (Version None)
Quarter: 2009Q3

REPORT INFORMATION
  Report Type: 
  Country: None (occurrence: None)
  Receive Date: 20090803
  Receipt Date: 20090612
  Transmission Date: 20100115
  Serious: No
  Sender: FDA-Public Use
  Company Number: US-BAYER-200924304NA

PATIENT

DRUGS (1)
  1. ULTRAVIST 150 [Suspect]
     Indication: DRUG USE FOR UNKNOWN INDICATION
     Dosage: POWER INJECTOR INTO HAND
     Dates: start: 20090611, end: 20090611

REACTIONS (2)
  - INJECTION SITE EXTRAVASATION [None]
  - INJECTION SITE VESICLES [None]
